FAERS Safety Report 5748756-X (Version None)
Quarter: 2008Q2

REPORT INFORMATION
  Report Type: 
  Country: None (occurrence: None)
  Receive Date: 20080521
  Receipt Date: 20080505
  Transmission Date: 20081010
  Serious: Yes (Hospitalization)
  Sender: FDA-Public Use
  Company Number: DSA_31815_2008

PATIENT
  Age: 52 Year
  Sex: Male

DRUGS (2)
  1. TAVOR /00273201/ (TAVOR - LORAZEPAM)  1 MG (NOT SPECIFIED) [Suspect]
     Dosage: 25 MG 1X  NOT THE PRESCRIBED AMOUNT. ORAL
     Route: 048
     Dates: start: 20080502, end: 20080502
  2. ETHANOL (ALCOHOL - ETHANOL) [Suspect]
     Dosage: AMOUNT  UNKNOWN.  ORAL
     Route: 048
     Dates: start: 20080502, end: 20080502

REACTIONS (6)
  - AGITATION [None]
  - ALCOHOL USE [None]
  - COORDINATION ABNORMAL [None]
  - INTENTIONAL OVERDOSE [None]
  - SUICIDE ATTEMPT [None]
  - VOMITING [None]
